FAERS Safety Report 19495867 (Version 1)
Quarter: 2021Q3

REPORT INFORMATION
  Report Type: Spontaneous
  Country: US (occurrence: US)
  Receive Date: 20210706
  Receipt Date: 20210706
  Transmission Date: 20211014
  Serious: Yes (Life-Threatening, Hospitalization, Other)
  Sender: FDA-Public Use
  Company Number: US-BRISTOL-MYERS SQUIBB COMPANY-BMS-2021-065420

PATIENT
  Age: 42 Year
  Sex: Female

DRUGS (1)
  1. IPILIMUMAB [Suspect]
     Active Substance: IPILIMUMAB
     Indication: MALIGNANT PITUITARY TUMOUR
     Dosage: CYCLE 1
     Route: 065

REACTIONS (2)
  - Immune-mediated encephalitis [Unknown]
  - Intentional product use issue [Unknown]
